FAERS Safety Report 19652262 (Version 2)
Quarter: 2021Q3

REPORT INFORMATION
  Report Type: Report from Study
  Country: CN (occurrence: CN)
  Receive Date: 20210803
  Receipt Date: 20210917
  Transmission Date: 20211014
  Serious: Yes (Hospitalization)
  Sender: FDA-Public Use
  Company Number: CN-PFIZER INC-202100960500

PATIENT
  Age: 64 Year
  Sex: Male
  Weight: 54 kg

DRUGS (30)
  1. ANZATAX [PACLITAXEL] [Suspect]
     Active Substance: PACLITAXEL
     Indication: SQUAMOUS CELL CARCINOMA OF LUNG
     Dosage: 270 MG, ONCE EVERY 3 WEEKS
     Route: 041
     Dates: start: 20210625, end: 20210625
  2. POLYSACCHARIDE?IRON COMPLEX [Concomitant]
     Active Substance: FERRIC POLYSACCHARIDE COMPLEX
     Indication: ANAEMIA
     Dosage: 150 MG, 1X/DAY
     Route: 048
     Dates: start: 20210705
  3. BUDESONIDE. [Concomitant]
     Active Substance: BUDESONIDE
     Indication: DYSPNOEA
     Dosage: 2 MG, 1X/DAY
     Route: 055
     Dates: start: 20210706
  4. BO BEI [Suspect]
     Active Substance: CARBOPLATIN
     Indication: SQUAMOUS CELL CARCINOMA OF LUNG
     Dosage: 550 MG, ONCE EVERY 3 WEEKS
     Route: 041
     Dates: start: 20210625, end: 20210625
  5. GLUTATHIONE [Concomitant]
     Active Substance: GLUTATHIONE
     Indication: HEPATOBILIARY DISORDER PROPHYLAXIS
     Dosage: 1.80 G, 1X/DAY
     Route: 041
     Dates: start: 20210625, end: 20210625
  6. FOLIC ACID. [Concomitant]
     Active Substance: FOLIC ACID
     Indication: ANAEMIA
     Dosage: 5 MG, 3X/DAY
     Route: 048
     Dates: start: 20210705
  7. MEROPENEM. [Concomitant]
     Active Substance: MEROPENEM
     Indication: INFECTION
     Dosage: 1 G, EVERY 8 HOURS
     Route: 041
     Dates: start: 20210705, end: 20210708
  8. POTASSIUM CHLORIDE. [Concomitant]
     Active Substance: POTASSIUM CHLORIDE
     Indication: HYPOKALAEMIA
     Dosage: 1 G, EVERY 3 HOURS
     Route: 048
     Dates: start: 20210705, end: 20210705
  9. DEXAMETHASONE. [Concomitant]
     Active Substance: DEXAMETHASONE
     Indication: PROPHYLAXIS
     Dosage: 5 MG, 1X/DAY
     Route: 042
     Dates: start: 20210625, end: 20210625
  10. MAGNESIUM ISOGLYCYRRHIZINATE [Concomitant]
     Active Substance: MAGNESIUM ISOGLYCYRRHIZINATE
     Dosage: 200 MG, 1X/DAY
     Route: 041
     Dates: start: 20210705, end: 20210708
  11. AMBROXOL [AMBROXOL HYDROCHLORIDE] [Concomitant]
     Indication: PRODUCTIVE COUGH
     Dosage: 30 MG, 1X/DAY
     Route: 042
     Dates: start: 20210705
  12. BLINDED THERAPY [Suspect]
     Active Substance: INVESTIGATIONAL PRODUCT
     Indication: SQUAMOUS CELL CARCINOMA OF LUNG
     Dosage: UNK, EVERY 3 WEEKS
     Route: 041
     Dates: start: 20210624, end: 20210624
  13. MAGNESIUM ISOGLYCYRRHIZINATE [Concomitant]
     Active Substance: MAGNESIUM ISOGLYCYRRHIZINATE
     Indication: HEPATOBILIARY DISORDER PROPHYLAXIS
     Dosage: 200 MG, 1X/DAY
     Route: 041
     Dates: start: 20210625, end: 20210625
  14. PROTEIN HYDROLYSATE [Concomitant]
     Active Substance: PROTEIN HYDROLYSATE
     Indication: NUTRITIONAL SUPPLEMENTATION
     Dosage: 20 G, 3X/DAY
     Route: 048
     Dates: start: 20210705
  15. COMPOUND SODIUM LACTATE AND GLUCOSE [Concomitant]
     Indication: PYREXIA
     Dosage: 500 ML, 1X/DAY
     Route: 041
     Dates: start: 20210705, end: 20210708
  16. IPRATROPIUM BROMIDE. [Concomitant]
     Active Substance: IPRATROPIUM BROMIDE
     Indication: DYSPNOEA
     Dosage: 0.5 MG, 1X/DAY
     Route: 055
     Dates: start: 20210706
  17. FOSAPREPITANT [Concomitant]
     Active Substance: FOSAPREPITANT
     Indication: PROPHYLAXIS OF NAUSEA AND VOMITING
     Dosage: 150 MG, 1X/DAY
     Route: 041
     Dates: start: 20210625, end: 20210625
  18. TROPISETRON [TROPISETRON HYDROCHLORIDE] [Concomitant]
     Indication: PROPHYLAXIS OF NAUSEA AND VOMITING
     Dosage: 5 MG, 1X/DAY
     Route: 041
     Dates: start: 20210625, end: 20210625
  19. CIMETIDINE [Concomitant]
     Active Substance: CIMETIDINE
     Indication: PROPHYLAXIS
     Dosage: 200 MG, 1X/DAY
     Route: 048
     Dates: start: 20210624, end: 20210625
  20. ESOMEPRAZOLE SODIUM. [Concomitant]
     Active Substance: ESOMEPRAZOLE SODIUM
     Indication: PROPHYLAXIS AGAINST GASTROINTESTINAL ULCER
     Dosage: 40 MG, 1X/DAY
     Route: 041
     Dates: start: 20210625, end: 20210625
  21. VITAMIN C [Concomitant]
     Active Substance: ASCORBIC ACID
     Indication: PYREXIA
     Dosage: 1 G, 1X/DAY
     Route: 041
     Dates: start: 20210705, end: 20210705
  22. IBUPROFEN. [Concomitant]
     Active Substance: IBUPROFEN
     Dosage: 10 ML, 1X/DAY
     Route: 048
     Dates: start: 20210705, end: 20210705
  23. ASPIRIN [ACETYLSALICYLIC ACID] [Concomitant]
     Active Substance: ASPIRIN
     Indication: PROPHYLAXIS
     Dosage: 0.1 G, 1X/DAY
     Route: 048
     Dates: start: 20210624, end: 20210625
  24. DIPHENHYDRAMINE [DIPHENHYDRAMINE HYDROCHLORIDE] [Concomitant]
     Active Substance: DIPHENHYDRAMINE HYDROCHLORIDE
     Indication: PROPHYLAXIS
     Dosage: 40 MG, 1X/DAY
     Route: 030
     Dates: start: 20210624, end: 20210625
  25. DIPROPHYLLINE [Concomitant]
     Active Substance: DYPHYLLINE
     Indication: DYSPNOEA
     Dosage: 0.5 G, 1X/DAY
     Route: 041
     Dates: start: 20210705, end: 20210708
  26. VITAMIN B6 [Concomitant]
     Active Substance: PYRIDOXINE HYDROCHLORIDE
     Indication: PYREXIA
     Dosage: 0.1 G, 1X/DAY
     Route: 041
     Dates: start: 20210705, end: 20210705
  27. IBUPROFEN. [Concomitant]
     Active Substance: IBUPROFEN
     Indication: PYREXIA
     Dosage: 10 ML, 1X/DAY
     Route: 048
     Dates: start: 20210624, end: 20210624
  28. ESOMEPRAZOLE SODIUM. [Concomitant]
     Active Substance: ESOMEPRAZOLE SODIUM
     Dosage: 40 MG, 1X/DAY
     Route: 041
     Dates: start: 20210705, end: 20210708
  29. MECOBALAMIN [Concomitant]
     Active Substance: METHYLCOBALAMIN
     Indication: NUTRITIONAL SUPPLEMENTATION
     Dosage: 500 UG, 3X/DAY
     Route: 048
     Dates: start: 20210705
  30. POTASSIUM CITRATE. [Concomitant]
     Active Substance: POTASSIUM CITRATE
     Indication: HYPOKALAEMIA
     Dosage: 1 SACHET, EVERY 2 HOURS
     Route: 048
     Dates: start: 20210706, end: 20210706

REACTIONS (1)
  - Chronic obstructive pulmonary disease [Recovered/Resolved with Sequelae]

NARRATIVE: CASE EVENT DATE: 20210707
